FAERS Safety Report 8267761-5 (Version None)
Quarter: 2012Q2

REPORT INFORMATION
  Report Type: 
  Country: None (occurrence: None)
  Receive Date: 20120405
  Receipt Date: 20120405
  Transmission Date: 20120825
  Serious: Yes (Hospitalization)
  Sender: FDA-Public Use
  Company Number: None

PATIENT
  Sex: Male
  Weight: 123.1 kg

DRUGS (3)
  1. CARBOPLATIN [Suspect]
     Dosage: 900 MG
  2. ERBITUX [Suspect]
     Dosage: 1514 MG
  3. TAXOL [Suspect]
     Dosage: 466 MG

REACTIONS (5)
  - DYSPNOEA [None]
  - TUMOUR LYSIS SYNDROME [None]
  - HYPERKALAEMIA [None]
  - HYPOTENSION [None]
  - ADRENAL INSUFFICIENCY [None]
